FAERS Safety Report 5865846-1 (Version None)
Quarter: 2008Q3

REPORT INFORMATION
  Report Type: 
  Country: None (occurrence: None)
  Receive Date: 20080829
  Receipt Date: 20080819
  Transmission Date: 20090109
  Serious: Yes (Hospitalization)
  Sender: FDA-Public Use
  Company Number: US-ELI_LILLY_AND_COMPANY-US200808003768

PATIENT
  Age: 49 Year
  Sex: Female

DRUGS (2)
  1. FORTEO [Suspect]
     Indication: OSTEOPOROSIS
     Dosage: UNK, UNK
     Dates: start: 20080401
  2. OMEPRAZOLE [Concomitant]
     Dosage: 2 UNK, DAILY (1/D)

REACTIONS (1)
  - JOINT DISLOCATION [None]
